FAERS Safety Report 6381694-0 (Version None)
Quarter: 2009Q3

REPORT INFORMATION
  Report Type: 
  Country: None (occurrence: None)
  Receive Date: 20090930
  Receipt Date: 20090917
  Transmission Date: 20100115
  Serious: Yes (Hospitalization)
  Sender: FDA-Public Use
  Company Number: PHHY2009AU40552

PATIENT
  Sex: Male

DRUGS (1)
  1. CLOZARIL [Suspect]
     Dosage: 300 MG DAILY
     Route: 048
     Dates: start: 20090108, end: 20090901

REACTIONS (2)
  - MALAISE [None]
  - SCHIZOPHRENIA [None]
